FAERS Safety Report 23895347 (Version 1)
Quarter: 2024Q2

REPORT INFORMATION
  Report Type: Spontaneous
  Country: US (occurrence: None)
  Receive Date: 20240523
  Receipt Date: 20240523
  Transmission Date: 20240716
  Serious: Yes (Other)
  Sender: FDA-Public Use
  Company Number: None

PATIENT
  Age: 63 Year
  Sex: Female

DRUGS (10)
  1. CAPECITABINE [Suspect]
     Active Substance: CAPECITABINE
     Indication: Gastrointestinal carcinoma
     Dosage: FREQUENCY : TWICE A DAY;?DAYS 1-14 OF CHEMO CYCLE
     Route: 048
     Dates: start: 20240506
  2. ALPRAZOLAM [Concomitant]
     Active Substance: ALPRAZOLAM
  3. BUT/ACETA/CAFF/COD [Concomitant]
  4. DEXAMETHASONE [Concomitant]
     Active Substance: DEXAMETHASONE
  5. FAMOTIDINE [Concomitant]
     Active Substance: FAMOTIDINE
  6. LOPERAMIDE [Concomitant]
     Active Substance: LOPERAMIDE
  7. ACETAMINOPHEN\HYDROCODONE [Concomitant]
     Active Substance: ACETAMINOPHEN\HYDROCODONE
  8. OLANZAPINE [Concomitant]
     Active Substance: OLANZAPINE
  9. PROCHLORPERAZINE [Concomitant]
     Active Substance: PROCHLORPERAZINE
  10. SCOPALAMINE PATCH [Concomitant]

REACTIONS (2)
  - Nausea [None]
  - Diarrhoea [None]

NARRATIVE: CASE EVENT DATE: 20240523
